FAERS Safety Report 6730935-6 (Version None)
Quarter: 2010Q2

REPORT INFORMATION
  Report Type: 
  Country: None (occurrence: None)
  Receive Date: 20100518
  Receipt Date: 20100507
  Transmission Date: 20101027
  Serious: Yes (Life-Threatening, Hospitalization)
  Sender: FDA-Public Use
  Company Number: DE-CEPHALON-2010002733

PATIENT
  Sex: Male
  Weight: 77 kg

DRUGS (5)
  1. TREANDA [Suspect]
     Indication: MANTLE CELL LYMPHOMA
     Dates: start: 20091110
  2. TREANDA [Suspect]
     Dates: start: 20091201
  3. TREANDA [Suspect]
     Dates: start: 20091221
  4. RITUXIMAB [Suspect]
     Indication: MANTLE CELL LYMPHOMA
     Dates: start: 20091110
  5. FORTECORTIN [Suspect]
     Indication: MANTLE CELL LYMPHOMA
     Dates: start: 20091110

REACTIONS (1)
  - ACUTE MYOCARDIAL INFARCTION [None]
